FAERS Safety Report 6714294-0 (Version None)
Quarter: 2010Q2

REPORT INFORMATION
  Report Type: 
  Country: None (occurrence: None)
  Receive Date: 20100506
  Receipt Date: 20100426
  Transmission Date: 20101027
  Serious: Yes (Other)
  Sender: FDA-Public Use
  Company Number: GB-BAUSCH-2010BL002211

PATIENT
  Age: 39 Year
  Sex: Female

DRUGS (4)
  1. PREDNISOLONE [Suspect]
     Indication: CROHN'S DISEASE
  2. ADALIMUMAB [Suspect]
     Indication: CROHN'S DISEASE
     Route: 058
  3. AZATHIOPRINE [Suspect]
     Indication: CROHN'S DISEASE
  4. INFLIXIMAB [Suspect]
     Indication: CROHN'S DISEASE

REACTIONS (2)
  - BASAL CELL CARCINOMA [None]
  - SQUAMOUS CELL CARCINOMA [None]
